FAERS Safety Report 19065527 (Version 1)
Quarter: 2021Q1

REPORT INFORMATION
  Report Type: Spontaneous
  Country: GB (occurrence: GB)
  Receive Date: 20210327
  Receipt Date: 20210327
  Transmission Date: 20210420
  Serious: Yes (Other)
  Sender: FDA-Public Use
  Company Number: NVSC2021GB064463

PATIENT
  Age: 34 Year
  Sex: Female
  Weight: 83 kg

DRUGS (2)
  1. QUETIAPINE. [Suspect]
     Active Substance: QUETIAPINE
     Dosage: UNK (XL 400 MG AND IR 50 MG BD)
     Route: 048
     Dates: start: 20210205, end: 20210310
  2. QUETIAPINE. [Suspect]
     Active Substance: QUETIAPINE
     Indication: ACUTE PSYCHOSIS
     Dosage: UNK (XL 500 MG AND IR 50 MG BD)
     Route: 048
     Dates: start: 20210111, end: 20210210

REACTIONS (1)
  - Urticaria [Recovered/Resolved]

NARRATIVE: CASE EVENT DATE: 20210125
